APPROVED DRUG PRODUCT: ELLIOTTS B SOLUTION
Active Ingredient: CALCIUM CHLORIDE; DEXTROSE; MAGNESIUM SULFATE; POTASSIUM CHLORIDE; SODIUM BICARBONATE; SODIUM CHLORIDE; SODIUM PHOSPHATE, DIBASIC, HEPTAHYDRATE
Strength: 0.2MG/ML;0.8MG/ML;0.3MG/ML;0.3MG/ML;1.9MG/ML;7.3MG/ML;0.2MG/ML
Dosage Form/Route: INJECTABLE;INTRATHECAL
Application: N020577 | Product #001
Applicant: LUKARE MEDICAL LLC
Approved: Sep 27, 1996 | RLD: Yes | RS: Yes | Type: RX